FAERS Safety Report 6096918-7 (Version None)
Quarter: 2009Q1

REPORT INFORMATION
  Report Type: 
  Country: None (occurrence: None)
  Receive Date: 20090227
  Receipt Date: 20090216
  Transmission Date: 20090719
  Serious: Yes (Hospitalization, Other)
  Sender: FDA-Public Use
  Company Number: DE-PFIZER INC-2008154955

PATIENT

DRUGS (9)
  1. SUTENT [Suspect]
     Indication: METASTATIC RENAL CELL CARCINOMA
     Dosage: 50 MG, 1X/DAY
     Route: 048
     Dates: start: 20071101
  2. SUTENT [Suspect]
     Dosage: 37.5 MG, 1X/DAY (25MG+12.5MG )
     Route: 048
     Dates: start: 20080101, end: 20090201
  3. CAPTOPRIL [Concomitant]
     Dosage: 12.5 MG, 1X/DAY
  4. PARACODIN N DROPS [Concomitant]
     Dosage: UNK
     Route: 048
  5. ACETYLCYSTEINE [Concomitant]
  6. MUCOSOLVAN [Concomitant]
     Dosage: UNK
  7. OMEPRAZOLE [Concomitant]
     Dosage: 20 MG, 1X/DAY
  8. CAPTOHEXAL [Concomitant]
     Indication: HYPERTENSION
     Dosage: 12.5MG DAILY
     Route: 048
  9. NEXIUM [Concomitant]
     Dosage: 20MG DAILY
     Route: 048

REACTIONS (5)
  - IRON DEFICIENCY ANAEMIA [None]
  - MUCOSAL INFLAMMATION [None]
  - NECROSIS [None]
  - OESOPHAGEAL FISTULA [None]
  - PANCYTOPENIA [None]
